FAERS Safety Report 6747600-1 (Version None)
Quarter: 2010Q2

REPORT INFORMATION
  Report Type: 
  Country: None (occurrence: None)
  Receive Date: 20100528
  Receipt Date: 20100517
  Transmission Date: 20101027
  Serious: Yes (Hospitalization)
  Sender: FDA-Public Use
  Company Number: PHHY2010BE31490

PATIENT
  Age: 70 Year
  Sex: Male

DRUGS (5)
  1. AFINITOR [Suspect]
     Indication: RENAL CELL CARCINOMA
     Dosage: 10 MG DAILY
     Dates: start: 20100301
  2. SALAZOPYRINE [Concomitant]
     Indication: CROHN'S DISEASE
  3. NOBITEN [Concomitant]
     Indication: HYPERTENSION
  4. COVERSYL [Concomitant]
     Indication: HYPERTENSION
  5. LIPITOR [Concomitant]

REACTIONS (2)
  - FACE OEDEMA [None]
  - TONGUE OEDEMA [None]
